FAERS Safety Report 5529535-5 (Version None)
Quarter: 2007Q4

REPORT INFORMATION
  Report Type: 
  Country: None (occurrence: None)
  Receive Date: 20071129
  Receipt Date: 20071120
  Transmission Date: 20080405
  Serious: Yes (Hospitalization, Other)
  Sender: FDA-Public Use
  Company Number: ES-PFIZER INC-2007098581

PATIENT
  Sex: Male
  Weight: 107.2 kg

DRUGS (9)
  1. METHYLPREDNISOLONE 16MG TAB [Suspect]
  2. MYCOPHENOLATE MOFETIL [Suspect]
     Indication: RENAL TRANSPLANT
     Dosage: DAILY DOSE:1000MG
     Route: 048
  3. ANTIHYPERTENSIVES [Concomitant]
  4. INSULIN [Concomitant]
  5. COROPRES [Concomitant]
  6. COZAAR [Concomitant]
  7. ENALAPRIL MALEATE [Concomitant]
  8. CARDURA [Concomitant]
  9. ADALAT [Concomitant]

REACTIONS (5)
  - ESCHERICHIA URINARY TRACT INFECTION [None]
  - HYPERTENSION [None]
  - KIDNEY TRANSPLANT REJECTION [None]
  - URINARY TRACT INFECTION BACTERIAL [None]
  - WEIGHT INCREASED [None]
